FAERS Safety Report 4918110-9 (Version None)
Quarter: 2006Q1

REPORT INFORMATION
  Report Type: 
  Country: None (occurrence: None)
  Receive Date: 20060221
  Receipt Date: 20050823
  Transmission Date: 20060701
  Serious: Yes (Hospitalization, Disabling)
  Sender: FDA-Public Use
  Company Number: US-MERCK-0508USA04096

PATIENT
  Age: 51 Year
  Sex: Female
  Weight: 86 kg

DRUGS (9)
  1. VIOXX [Suspect]
     Indication: ARTHRALGIA
     Route: 048
     Dates: start: 20011102, end: 20021024
  2. ZITHROMAX [Concomitant]
     Route: 065
  3. ACETASOL [Concomitant]
     Route: 065
  4. SKELAXIN [Concomitant]
     Route: 065
  5. GLUCOTROL [Concomitant]
     Route: 065
  6. MACROBID [Concomitant]
     Route: 065
  7. HYDROCODONE HYDROCHLORIDE [Concomitant]
     Route: 065
  8. TEQUIN [Concomitant]
     Route: 065
  9. NAPROXEN [Concomitant]
     Route: 065

REACTIONS (8)
  - ACUTE MYOCARDIAL INFARCTION [None]
  - AFFECT LABILITY [None]
  - CARDIOVASCULAR DISORDER [None]
  - DEPRESSION [None]
  - DISTURBANCE IN ATTENTION [None]
  - LIBIDO DECREASED [None]
  - SLEEP DISORDER [None]
  - STENT OCCLUSION [None]
